FAERS Safety Report 11795127 (Version 1)
Quarter: 2015Q4

REPORT INFORMATION
  Report Type: Report from Study
  Country: US (occurrence: US)
  Receive Date: 20151202
  Receipt Date: 20151202
  Transmission Date: 20160305
  Serious: Yes (Hospitalization, Other)
  Sender: FDA-Public Use
  Company Number: US-KADMON PHARMACEUTICALS, LLC-KAD201512-004191

PATIENT
  Age: 46 Year
  Sex: Female

DRUGS (13)
  1. RIBAVIRIN. [Suspect]
     Active Substance: RIBAVIRIN
     Indication: HEPATITIS C
     Route: 048
     Dates: start: 20151030
  2. IBUPROFEN. [Concomitant]
     Active Substance: IBUPROFEN
     Indication: PAIN
  3. CYCLOBENZAPRINE [Concomitant]
     Active Substance: CYCLOBENZAPRINE
     Indication: BACK INJURY
  4. VITAMIN B6 [Concomitant]
     Active Substance: PYRIDOXINE HYDROCHLORIDE
  5. ERGOCALCIFEROL. [Concomitant]
     Active Substance: ERGOCALCIFEROL
  6. ZINC [Concomitant]
     Active Substance: ZINC\ZINC CHLORIDE
  7. SUMATRIPTAN. [Concomitant]
     Active Substance: SUMATRIPTAN
  8. ESCITALOPRAM [Concomitant]
     Active Substance: ESCITALOPRAM OXALATE
     Indication: STRESS
  9. VIEKIRA PAK [Suspect]
     Active Substance: DASABUVIR\OMBITASVIR\PARITAPREVIR\RITONAVIR
     Indication: HEPATITIS C
     Dosage: TABLET
     Route: 048
     Dates: start: 20151030
  10. TRIAMTERENE. [Concomitant]
     Active Substance: TRIAMTERENE
  11. OMEGA 3 FATTY ACID [Concomitant]
     Active Substance: OMEGA-3 FATTY ACIDS
  12. VENTOLIN [Concomitant]
     Active Substance: ALBUTEROL SULFATE
  13. DESLORATADINE. [Concomitant]
     Active Substance: DESLORATADINE

REACTIONS (25)
  - Mood swings [Unknown]
  - Chromaturia [Unknown]
  - Dry eye [Unknown]
  - Confusional state [Unknown]
  - Haematocrit decreased [Unknown]
  - Irritability [Unknown]
  - Haemoglobin decreased [Unknown]
  - Anxiety [Unknown]
  - Depression [Unknown]
  - Bronchitis [Recovered/Resolved]
  - Blood bilirubin increased [Unknown]
  - Red blood cell count decreased [Unknown]
  - Inflammation [Unknown]
  - Migraine [Unknown]
  - Asthenia [Unknown]
  - Blood potassium decreased [Unknown]
  - Nausea [Unknown]
  - Alopecia [Unknown]
  - Vision blurred [Unknown]
  - Weight decreased [Unknown]
  - Vomiting [Unknown]
  - Hepatic enzyme decreased [Unknown]
  - Pruritus [Unknown]
  - Fatigue [Unknown]
  - Dyspepsia [Unknown]

NARRATIVE: CASE EVENT DATE: 201511
